FAERS Safety Report 10236764 (Version 2)
Quarter: 2014Q2

REPORT INFORMATION
  Report Type: Spontaneous
  Country: GB (occurrence: GB)
  Receive Date: 20140613
  Receipt Date: 20140630
  Transmission Date: 20141212
  Serious: Yes (Other)
  Sender: FDA-Public Use
  Company Number: GB-GLAXOSMITHKLINE-B1002634A

PATIENT
  Age: 82 Year
  Sex: Male

DRUGS (3)
  1. BECONASE [Suspect]
     Indication: SEASONAL ALLERGY
     Route: 045
  2. UNKNOWN MEDICATION [Concomitant]
  3. ANTIHISTAMINE [Concomitant]
     Indication: SEASONAL ALLERGY

REACTIONS (4)
  - Anticoagulant therapy [Unknown]
  - Myocardial infarction [Unknown]
  - Stent placement [Unknown]
  - Epistaxis [Unknown]
